FAERS Safety Report 8048228-6 (Version None)
Quarter: 2012Q1

REPORT INFORMATION
  Report Type: 
  Country: None (occurrence: None)
  Receive Date: 20120113
  Receipt Date: 20120113
  Transmission Date: 20120608
  Serious: No
  Sender: FDA-Public Use
  Company Number: None

PATIENT
  Age: 51 Year
  Sex: Female

DRUGS (1)
  1. DOXYCYCLINE [Suspect]
     Dates: start: 20090707, end: 20090721

REACTIONS (10)
  - LYMPHOCYTE PERCENTAGE DECREASED [None]
  - CHOLELITHIASIS [None]
  - LIVER INJURY [None]
  - HAEMOGLOBIN DECREASED [None]
  - MONOCYTE PERCENTAGE DECREASED [None]
  - FATIGUE [None]
  - LETHARGY [None]
  - PYREXIA [None]
  - HEPATITIS B SURFACE ANTIBODY POSITIVE [None]
  - HEPATIC STEATOSIS [None]
